FAERS Safety Report 9718785 (Version 2)
Quarter: 2013Q4

REPORT INFORMATION
  Report Type: Spontaneous
  Country: BR (occurrence: BR)
  Receive Date: 20131127
  Receipt Date: 20131224
  Transmission Date: 20140711
  Serious: Yes (Hospitalization, Other)
  Sender: FDA-Public Use
  Company Number: BR-RANBAXY-2013US-75714

PATIENT
  Age: 60 Year
  Sex: Female

DRUGS (7)
  1. PANTOPRAZOLE [Suspect]
     Indication: GASTRITIS
     Dosage: 1 DF, QD
     Route: 065
  2. ALUMINUM HYDROXIDE [Suspect]
     Indication: DYSPEPSIA
     Dosage: 1 TABLESPOON ONLY WHEN PRESENTED HEARTBURN
     Route: 065
  3. CALCIUM SANDOZ F [Suspect]
     Indication: PROPHYLAXIS
     Dosage: 4 TABLET OR 3 TABLET NOT CLARIFIED
     Route: 048
  4. CALCIUM SANDOZ FF [Suspect]
     Indication: PROPHYLAXIS
     Dosage: UNK
     Route: 048
  5. GASTROGEL [Suspect]
     Indication: DYSPEPSIA
     Dosage: 1 TABLESPOON ONLY WHEN PRESENTED HEARTBURN
     Route: 065
  6. PURAN T4 [Suspect]
     Indication: THYROID DISORDER
     Dosage: UNK
     Route: 048
  7. RIVOTRIL [Suspect]
     Indication: SLEEP DISORDER
     Dosage: UNK
     Route: 065

REACTIONS (16)
  - Hiatus hernia [Unknown]
  - Reflux gastritis [Unknown]
  - Corrosive gastritis [Unknown]
  - Vocal cord disorder [Unknown]
  - Blindness [Unknown]
  - Musculoskeletal stiffness [Recovered/Resolved]
  - Aphagia [Unknown]
  - Eating disorder [Recovered/Resolved]
  - Pain [Unknown]
  - Tongue disorder [Recovered/Resolved]
  - Feeling abnormal [Unknown]
  - Blood cholesterol abnormal [Unknown]
  - Insomnia [Unknown]
  - Dizziness [Recovered/Resolved]
  - Asthenia [Recovered/Resolved]
  - Headache [Recovered/Resolved]
